FAERS Safety Report 14319205 (Version 1)
Quarter: 2017Q4

REPORT INFORMATION
  Report Type: Spontaneous
  Country: US (occurrence: US)
  Receive Date: 20171222
  Receipt Date: 20171222
  Transmission Date: 20180321
  Serious: Yes (Other)
  Sender: FDA-Public Use
  Company Number: US-PROCTER+GAMBLE-GS17139767

PATIENT

DRUGS (1)
  1. VICKS NYQUIL SEVERE COLD AND FLU [Suspect]
     Active Substance: ACETAMINOPHEN\DEXTROMETHORPHAN HYDROBROMIDE\DOXYLAMINE SUCCINATE\PHENYLEPHRINE
     Dosage: UNK UNK, 3 /DAY
     Route: 048
     Dates: start: 2015

REACTIONS (5)
  - Hypertension [Unknown]
  - Feeling abnormal [Unknown]
  - Drug ineffective [Unknown]
  - Hemiplegia [Unknown]
  - Cerebrovascular accident [Unknown]

NARRATIVE: CASE EVENT DATE: 2015
